FAERS Safety Report 5087420-X (Version None)
Quarter: 2006Q3

REPORT INFORMATION
  Report Type: 
  Country: None (occurrence: None)
  Receive Date: 20060824
  Receipt Date: 20060818
  Transmission Date: 20061208
  Serious: Yes (Death, Hospitalization)
  Sender: FDA-Public Use
  Company Number: GB-JNJFOC-20060804533

PATIENT
  Sex: Female

DRUGS (7)
  1. REMICADE [Suspect]
     Indication: RHEUMATOID ARTHRITIS
     Route: 042
  2. HRT [Concomitant]
     Route: 065
  3. NAPROXEN [Concomitant]
     Route: 065
  4. PREDNISOLONE [Concomitant]
     Route: 065
  5. BENDROFLUAZIDE [Concomitant]
     Route: 065
  6. CALCIUM GLUCONATE [Concomitant]
     Route: 065
  7. VITAMIN D [Concomitant]
     Route: 065

REACTIONS (3)
  - DEATH [None]
  - DYSPNOEA [None]
  - SMALL CELL LUNG CANCER STAGE UNSPECIFIED [None]
